FAERS Safety Report 9176846 (Version 1)
Quarter: 2013Q1

REPORT INFORMATION
  Report Type: Spontaneous
  Country: BE (occurrence: BE)
  Receive Date: 20130321
  Receipt Date: 20130321
  Transmission Date: 20140127
  Serious: Yes (Other)
  Sender: FDA-Public Use
  Company Number: PHHY2013BE026962

PATIENT
  Sex: Female
  Weight: 97 kg

DRUGS (6)
  1. ZOMETA [Suspect]
     Indication: METASTASES TO BONE
     Dosage: 4 MG, FIRST EVERY 3 MONTHS THEN EVERY 6 MONTHS
     Dates: start: 1998, end: 201208
  2. FEMARA [Concomitant]
     Indication: BREAST CANCER
     Dosage: 2.5 MG,DAILY
     Route: 048
     Dates: start: 1997, end: 201205
  3. L-THYROXINE [Concomitant]
     Indication: HYPOTHYROIDISM
     Dosage: 150 UG,DAILY
     Route: 048
  4. METFORMAX [Concomitant]
     Indication: TYPE 2 DIABETES MELLITUS
     Dosage: 850 MG, 1 TO 2 DAILY
     Route: 048
  5. CALCIUM CARBONATE AND VITAMIN D [Concomitant]
     Dosage: UNK UKN, DAILY
     Route: 048
  6. SIMVASTATIN [Concomitant]
     Indication: HYPERCHOLESTEROLAEMIA
     Dosage: 20 MG, DAILY
     Route: 048

REACTIONS (2)
  - Osteonecrosis of jaw [Recovered/Resolved]
  - Abscess jaw [Recovered/Resolved]
